FAERS Safety Report 8355590-3 (Version None)
Quarter: 2012Q2

REPORT INFORMATION
  Report Type: 
  Country: None (occurrence: None)
  Receive Date: 20120514
  Receipt Date: 20120502
  Transmission Date: 20120825
  Serious: Yes (Hospitalization)
  Sender: FDA-Public Use
  Company Number: CH-BRISTOL-MYERS SQUIBB COMPANY-16229726

PATIENT
  Age: 68 Year
  Sex: Male

DRUGS (3)
  1. CISPLATIN [Suspect]
     Indication: OESOPHAGEAL CARCINOMA
     Dosage: 13JAN11-17FEB11,28FEB11-28MAR11;50MG,PRIOR TO EVENT: 28MAR11
     Route: 042
     Dates: start: 20110113, end: 20110328
  2. CETUXIMAB [Suspect]
     Indication: OESOPHAGEAL CARCINOMA
     Dosage: 13JAN11-17FEB11,28FEB11-28MAR11;500MG,1000MG 1 IN 2 WK;13JUL11-21SEP11. PRIOR TO EVENT: 21SEP11
     Route: 042
     Dates: start: 20110113, end: 20110921
  3. DOCETAXEL [Suspect]
     Indication: OESOPHAGEAL CARCINOMA
     Dosage: 13JAN11-17FEB11,28FEB11-28MAR11;40MG,PRIOR TO EVENT:28MAR11.
     Route: 042
     Dates: start: 20110113, end: 20110328

REACTIONS (1)
  - ENDOPHTHALMITIS [None]
